FAERS Safety Report 7433692-3 (Version None)
Quarter: 2011Q2

REPORT INFORMATION
  Report Type: 
  Country: None (occurrence: None)
  Receive Date: 20110422
  Receipt Date: 20110408
  Transmission Date: 20111010
  Serious: Yes (Hospitalization)
  Sender: FDA-Public Use
  Company Number: FR-CELGENEUS-056-21880-11033303

PATIENT
  Sex: Female

DRUGS (27)
  1. CALCIUM GLUCONATE [Concomitant]
     Route: 065
  2. KEPPRA [Concomitant]
     Route: 065
  3. GENTAMICIN [Concomitant]
     Indication: HYPERTHERMIA
     Route: 065
  4. SANDIMMUNE [Suspect]
     Indication: PROPHYLAXIS AGAINST GRAFT VERSUS HOST DISEASE
     Dosage: 240 MILLIGRAM
     Route: 051
     Dates: start: 20101115, end: 20101119
  5. LEVOTHYROX [Concomitant]
     Route: 065
  6. KEPPRA [Concomitant]
     Route: 065
  7. TAZOCILLINE [Concomitant]
     Route: 065
  8. THYMOGLOBULIN [Suspect]
     Indication: BONE GRAFT
     Dosage: 200 MILLIGRAM
     Route: 051
     Dates: start: 20101111, end: 20101112
  9. FORTAM [Concomitant]
     Route: 065
  10. ROCEPHIN [Concomitant]
     Indication: HYPERTHERMIA
     Route: 065
  11. GENTAMICIN [Concomitant]
     Route: 065
  12. METHOTREXATE [Suspect]
     Indication: PROPHYLAXIS AGAINST GRAFT VERSUS HOST DISEASE
     Route: 051
     Dates: start: 20101118, end: 20101128
  13. VANCOMYCINE [Concomitant]
     Route: 065
  14. ENDOXAN [Suspect]
     Indication: BONE GRAFT
     Dosage: 1360 MILLIGRAM
     Route: 051
     Dates: start: 20101111, end: 20101113
  15. ZELITREX [Concomitant]
     Route: 065
  16. ZELITREX [Concomitant]
     Route: 065
  17. VANCOMYCINE [Concomitant]
     Route: 065
  18. ROCEPHIN [Concomitant]
     Route: 065
  19. TAZOCILLINE [Concomitant]
     Route: 065
  20. REVLIMID [Suspect]
     Indication: MULTIPLE MYELOMA
     Dosage: 10 MILLIGRAM
     Route: 048
     Dates: start: 20100201, end: 20101101
  21. LEVOTHYROX [Concomitant]
     Route: 065
  22. SOLU-MEDROL [Concomitant]
     Indication: GRAFT VERSUS HOST DISEASE
     Route: 065
     Dates: start: 20101111
  23. FORTAM [Concomitant]
     Route: 065
  24. FLUDARABINE EBEWE [Suspect]
     Indication: BONE GRAFT
     Dosage: 54 MILLIGRAM
     Route: 051
     Dates: start: 20101111, end: 20101113
  25. CALCIUM GLUCONATE [Concomitant]
     Indication: HYPOCALCAEMIA
     Dosage: 6 VIALS.
     Route: 065
  26. TIENAM [Concomitant]
     Route: 065
  27. TIENAM [Concomitant]
     Route: 065

REACTIONS (4)
  - CONVULSION [None]
  - ENCEPHALITIS [None]
  - MYOCLONUS [None]
  - CONFUSIONAL STATE [None]
